FAERS Safety Report 15565803 (Version 1)
Quarter: 2018Q4

REPORT INFORMATION
  Report Type: Spontaneous
  Country: US (occurrence: US)
  Receive Date: 20181025
  Receipt Date: 20181025
  Transmission Date: 20190205
  Serious: No
  Sender: FDA-Public Use
  Company Number: None

PATIENT
  Age: 68 Year
  Sex: Female

DRUGS (1)
  1. LIDOCAINE INJ 100MG/5ML IMS/AMPHASTAR [Suspect]
     Active Substance: LIDOCAINE
     Indication: HYPOMAGNESAEMIA
     Dates: start: 201804

REACTIONS (2)
  - Transcription medication error [None]
  - Product supply issue [None]

NARRATIVE: CASE EVENT DATE: 20181023
